FAERS Safety Report 19449868 (Version 1)
Quarter: 2021Q2

REPORT INFORMATION
  Report Type: Report from Study
  Country: DE (occurrence: DE)
  Receive Date: 20210622
  Receipt Date: 20210622
  Transmission Date: 20210717
  Serious: Yes (Other)
  Sender: FDA-Public Use
  Company Number: NVSC2021DE028059

PATIENT
  Sex: Male

DRUGS (4)
  1. DICLOFENAC [Suspect]
     Active Substance: DICLOFENAC
     Indication: AXIAL SPONDYLOARTHRITIS
     Dosage: 75 MG, QD
     Route: 065
     Dates: start: 20200710, end: 20200904
  2. COSENTYX [Suspect]
     Active Substance: SECUKINUMAB
     Indication: AXIAL SPONDYLOARTHRITIS
     Dosage: 150 MG, Q4W
     Route: 065
     Dates: start: 20190919
  3. IBUPROFEN. [Concomitant]
     Active Substance: IBUPROFEN
     Indication: AXIAL SPONDYLOARTHRITIS
     Dosage: 800 MG, QD
     Route: 065
     Dates: start: 20140304, end: 20200710
  4. ETORICOXIB. [Concomitant]
     Active Substance: ETORICOXIB
     Indication: AXIAL SPONDYLOARTHRITIS
     Dosage: 90 MG, QD
     Route: 065
     Dates: start: 20200904

REACTIONS (1)
  - Paternal exposure during pregnancy [Not Recovered/Not Resolved]

NARRATIVE: CASE EVENT DATE: 20200815
